FAERS Safety Report 4660377-9 (Version None)
Quarter: 2005Q2

REPORT INFORMATION
  Report Type: 
  Country: None (occurrence: None)
  Receive Date: 20050511
  Receipt Date: 20050511
  Transmission Date: 20051028
  Serious: Yes (Hospitalization)
  Sender: FDA-Public Use
  Company Number: None

PATIENT
  Age: 60 Year
  Sex: Male

DRUGS (5)
  1. WARFARIN [Suspect]
     Indication: PULMONARY EMBOLISM
     Dosage: 5 MG M,W,F,SU 7.5 MG T,TH,SA
     Dates: start: 20041001
  2. CIPROFLOXACIN HCL [Suspect]
     Indication: INFECTION
     Dosage: 600 MG BID X 14 DAYS
     Dates: start: 20041207
  3. PERCOCET [Concomitant]
  4. DANTROLONE [Concomitant]
  5. TERAZOSIN [Concomitant]

REACTIONS (1)
  - GASTROINTESTINAL HAEMORRHAGE [None]
